FAERS Safety Report 20914791 (Version 2)
Quarter: 2022Q3

REPORT INFORMATION
  Report Type: Spontaneous
  Country: US (occurrence: US)
  Receive Date: 20220604
  Receipt Date: 20220718
  Transmission Date: 20221027
  Serious: No
  Sender: FDA-Public Use
  Company Number: US-SA-SAC20220524000626

PATIENT
  Age: 17 Year
  Sex: Male

DRUGS (4)
  1. DUPIXENT [Suspect]
     Active Substance: DUPILUMAB
     Indication: Dermatitis atopic
     Dosage: 300 MG, QOW
     Route: 058
     Dates: start: 20220409
  2. AQUAPHOR (XIPAMIDE) [Concomitant]
     Active Substance: XIPAMIDE
  3. HYDROCORTISONE [Concomitant]
     Active Substance: HYDROCORTISONE
     Dosage: UNK
  4. TRIAMCINOLONE ACETONIDE [Concomitant]
     Active Substance: TRIAMCINOLONE ACETONIDE
     Dosage: UNK

REACTIONS (8)
  - Presyncope [Not Recovered/Not Resolved]
  - Injury [Not Recovered/Not Resolved]
  - Dry skin [Not Recovered/Not Resolved]
  - Eyelid skin dryness [Not Recovered/Not Resolved]
  - Ocular hyperaemia [Unknown]
  - Dry eye [Not Recovered/Not Resolved]
  - Dermatitis atopic [Recovering/Resolving]
  - Conjunctivitis [Unknown]
